FAERS Safety Report 21858547 (Version 1)
Quarter: 2023Q1

REPORT INFORMATION
  Report Type: Report from Study
  Country: CO (occurrence: CO)
  Receive Date: 20230113
  Receipt Date: 20230113
  Transmission Date: 20230417
  Serious: Yes (Other)
  Sender: FDA-Public Use
  Company Number: CO-ABBVIE-4268657

PATIENT
  Age: 7 Year
  Sex: Male
  Weight: 37 kg

DRUGS (2)
  1. HUMIRA [Suspect]
     Active Substance: ADALIMUMAB
     Indication: Uveitis
     Route: 058
     Dates: start: 20220221, end: 20221130
  2. PREDNISONE [Suspect]
     Active Substance: PREDNISONE
     Indication: Prophylaxis
     Route: 048
     Dates: start: 2022, end: 20221220

REACTIONS (9)
  - Uveitis [Recovered/Resolved]
  - Cataract [Recovered/Resolved]
  - Ocular hypertension [Recovered/Resolved]
  - Iris adhesions [Recovered/Resolved]
  - Blindness unilateral [Recovered/Resolved]
  - Keratopathy [Recovered/Resolved]
  - Adhesion [Recovered/Resolved]
  - Weight increased [Recovered/Resolved]
  - Cataract [Recovered/Resolved]

NARRATIVE: CASE EVENT DATE: 20220301
